FAERS Safety Report 8521779-3 (Version None)
Quarter: 2012Q3

REPORT INFORMATION
  Report Type: 
  Country: None (occurrence: None)
  Receive Date: 20120706
  Receipt Date: 20120117
  Transmission Date: 20120928
  Serious: Yes (Other)
  Sender: FDA-Public Use
  Company Number: PI-06541

PATIENT
  Age: 71 Year
  Sex: Male

DRUGS (1)
  1. CHLORAPREP [Suspect]
     Indication: PREOPERATIVE CARE
     Dosage: 26ML,ONCE,TOPICAL
     Route: 061
     Dates: start: 20120106

REACTIONS (4)
  - APPLICATION SITE PRURITUS [None]
  - APPLICATION SITE ERYTHEMA [None]
  - NEUROPATHY PERIPHERAL [None]
  - INCISION SITE BLISTER [None]
